FAERS Safety Report 4414928-X (Version None)
Quarter: 2004Q3

REPORT INFORMATION
  Report Type: 
  Country: None (occurrence: None)
  Receive Date: 20040729
  Receipt Date: 20040713
  Transmission Date: 20050211
  Serious: Yes (Other)
  Sender: FDA-Public Use
  Company Number: APP200400630

PATIENT
  Age: 45 Year
  Sex: Female

DRUGS (2)
  1. PROFASI HP [Suspect]
     Indication: INFERTILITY
     Dosage: 10000 USP UNITS (10000 USP UNITS, 1 IN 1 D), INJECTION
     Dates: start: 19981007, end: 19981007
  2. GONAL-F [Suspect]
     Indication: INFERTILITY
     Dosage: 75 IU (75 IU) INJECTION
     Dates: start: 19980801, end: 19980801

REACTIONS (1)
  - BREAST CANCER [None]
